FAERS Safety Report 14994692 (Version 32)
Quarter: 2019Q3

REPORT INFORMATION
  Report Type: Spontaneous
  Country: DE (occurrence: DE)
  Receive Date: 20180611
  Receipt Date: 20190815
  Transmission Date: 20191004
  Serious: Yes (Death, Hospitalization, Other)
  Sender: FDA-Public Use
  Company Number: PHHY2018DE018423

PATIENT
  Age: 40 Year
  Sex: Female
  Weight: 108 kg

DRUGS (103)
  1. DEXAMETHASONE. [Suspect]
     Active Substance: DEXAMETHASONE
     Dosage: 4 MG, QD
     Route: 048
     Dates: start: 20180208, end: 20180214
  2. DEXAMETHASONE. [Suspect]
     Active Substance: DEXAMETHASONE
     Dosage: 4 MG, QD
     Route: 048
     Dates: start: 20180321, end: 20180321
  3. DEXAMETHASONE. [Suspect]
     Active Substance: DEXAMETHASONE
     Dosage: 8 MG, QD
     Route: 048
     Dates: start: 20180409, end: 20180411
  4. VEMURAFENIB. [Suspect]
     Active Substance: VEMURAFENIB
     Indication: MALIGNANT MELANOMA
     Dosage: 1920 MG, QD
     Route: 048
     Dates: start: 20180202, end: 20180215
  5. VEMURAFENIB. [Suspect]
     Active Substance: VEMURAFENIB
     Dosage: 1920 MG, QD
     Route: 048
     Dates: start: 20180220, end: 20180222
  6. LEVETIRACETAM. [Concomitant]
     Active Substance: LEVETIRACETAM
     Dosage: 1000 MG, QD
     Route: 048
     Dates: start: 20180415, end: 20180415
  7. PICOSALAX [Concomitant]
     Active Substance: ANHYDROUS CITRIC ACID\MAGNESIUM OXIDE\SODIUM PICOSULFATE
     Dosage: 10 GTT, QD
     Route: 048
     Dates: start: 20180406, end: 20180415
  8. PICOSALAX [Concomitant]
     Active Substance: ANHYDROUS CITRIC ACID\MAGNESIUM OXIDE\SODIUM PICOSULFATE
     Dosage: 16 GTT, QD
     Route: 048
     Dates: start: 20180408, end: 20180408
  9. HEPARIN [Concomitant]
     Active Substance: HEPARIN SODIUM
     Dosage: 5000 IU, QD
     Route: 058
     Dates: start: 20180318, end: 20180318
  10. CODEIN [Concomitant]
     Active Substance: CODEINE
     Indication: COUGH
     Dosage: 30 GTT, UNK
     Route: 048
  11. MIDAZOLAM [Concomitant]
     Active Substance: MIDAZOLAM HYDROCHLORIDE
     Dosage: 24 MG, UNK
     Route: 058
     Dates: start: 20180417, end: 20180418
  12. METAMIZOLE [Concomitant]
     Active Substance: METAMIZOLE
     Indication: PYREXIA
     Dosage: 30 GTT, QD
     Route: 048
     Dates: start: 20180321, end: 20180321
  13. HYDROMORPHONE [Concomitant]
     Active Substance: HYDROMORPHONE
     Dosage: 2.4 MG, QD
     Route: 058
     Dates: start: 20180418
  14. DIMENHYDRINAT [Concomitant]
     Active Substance: DIMENHYDRINATE
     Indication: NAUSEA
     Dosage: 62 MG, QD
     Route: 042
     Dates: start: 20180330, end: 20180331
  15. THYMIAN [Concomitant]
     Indication: COUGH
     Dosage: 20 ML, QD
     Route: 048
     Dates: start: 20180327, end: 20180327
  16. SULTANOL [Concomitant]
     Active Substance: ALBUTEROL SULFATE
     Indication: COUGH
     Dosage: 3 OT, QD
     Route: 055
     Dates: start: 20180330, end: 20180404
  17. PREDNISOLON [Suspect]
     Active Substance: PREDNISOLONE
     Indication: PNEUMONITIS
     Dosage: 20 MG, QD
     Route: 048
     Dates: start: 20180129, end: 20180204
  18. DEXAMETHASONE. [Suspect]
     Active Substance: DEXAMETHASONE
     Dosage: 8 MG, QD
     Route: 048
     Dates: start: 20180412, end: 20180413
  19. LEVETIRACETAM. [Concomitant]
     Active Substance: LEVETIRACETAM
     Dosage: 1 G, QD
     Route: 058
     Dates: start: 20180421
  20. PICOSALAX [Concomitant]
     Active Substance: ANHYDROUS CITRIC ACID\MAGNESIUM OXIDE\SODIUM PICOSULFATE
     Dosage: 18 GTT, QD
     Route: 048
     Dates: start: 20180409, end: 20180414
  21. HEPARIN [Concomitant]
     Active Substance: HEPARIN SODIUM
     Indication: PROPHYLAXIS
     Dosage: 10000 IU, QD
     Route: 058
     Dates: start: 20180317, end: 20180317
  22. MIDAZOLAM [Concomitant]
     Active Substance: MIDAZOLAM HYDROCHLORIDE
     Dosage: 2 MG, QD
     Route: 058
     Dates: start: 20180420, end: 20180420
  23. ONDANSETRON [Concomitant]
     Active Substance: ONDANSETRON
     Indication: NAUSEA
     Dosage: 8 MG, QD
     Route: 048
     Dates: start: 20180329, end: 20180329
  24. LORAZEPAM. [Concomitant]
     Active Substance: LORAZEPAM
     Indication: RESTLESSNESS
     Dosage: 1 MG, QD
     Route: 048
     Dates: start: 20180411, end: 20180411
  25. LORAZEPAM. [Concomitant]
     Active Substance: LORAZEPAM
     Dosage: 3 MG, QD
     Route: 048
     Dates: start: 20180417, end: 20180417
  26. DIMENHYDRINAT [Concomitant]
     Active Substance: DIMENHYDRINATE
     Dosage: 50 MG, QD
     Route: 048
     Dates: start: 20180330, end: 20180401
  27. TAVOR [Concomitant]
     Dosage: 1 MG, QD
     Route: 058
     Dates: start: 20180416, end: 20180416
  28. KALINOR [Concomitant]
     Indication: HYPOKALAEMIA
     Dosage: 4000 MG, QD
     Route: 048
     Dates: start: 20180323, end: 20180323
  29. KALINOR [Concomitant]
     Dosage: 2000 MG, QD
     Route: 048
     Dates: start: 20180404, end: 20180405
  30. DEXAMETHASONE. [Suspect]
     Active Substance: DEXAMETHASONE
     Dosage: 4 MG, BID
     Route: 048
     Dates: start: 20180202, end: 20180207
  31. DEXAMETHASONE. [Suspect]
     Active Substance: DEXAMETHASONE
     Dosage: 8 MG, QD
     Route: 048
     Dates: start: 20180317, end: 20180324
  32. PICOSALAX [Concomitant]
     Active Substance: ANHYDROUS CITRIC ACID\MAGNESIUM OXIDE\SODIUM PICOSULFATE
     Indication: CONSTIPATION
     Dosage: 10 GTT, QD
     Route: 048
     Dates: start: 20180401, end: 20180402
  33. METAMIZOLE [Concomitant]
     Active Substance: METAMIZOLE
     Dosage: 2.5 G, QD
     Route: 058
     Dates: start: 20180416, end: 20180418
  34. RINGERS SOLUTION [Concomitant]
     Active Substance: CALCIUM CHLORIDE\POTASSIUM CHLORIDE\SODIUM CHLORIDE
     Dosage: 500 ML, QD
     Route: 042
     Dates: start: 20180325, end: 20180325
  35. HYDROMORPHONE [Concomitant]
     Active Substance: HYDROMORPHONE
     Dosage: 4 MG, QD
     Route: 048
     Dates: start: 20180410, end: 20180414
  36. HYDROMORPHONE [Concomitant]
     Active Substance: HYDROMORPHONE
     Dosage: 2.6 MG, QD
     Route: 058
     Dates: start: 20180413, end: 20180413
  37. HYDROMORPHONE [Concomitant]
     Active Substance: HYDROMORPHONE
     Dosage: 0.05 MG, QD
     Route: 058
     Dates: start: 20180416, end: 20180416
  38. HYDROMORPHONE [Concomitant]
     Active Substance: HYDROMORPHONE
     Dosage: 0.2 MG, QD
     Route: 058
     Dates: start: 20180418, end: 20180419
  39. DIMENHYDRINAT [Concomitant]
     Active Substance: DIMENHYDRINATE
     Dosage: 150 MG, QD
     Route: 048
     Dates: start: 20180405, end: 20180415
  40. POTASSIUM [Concomitant]
     Active Substance: POTASSIUM
     Indication: HYPOKALAEMIA
     Dosage: 1 OT, QD
     Route: 048
     Dates: start: 20180412, end: 20180416
  41. PREDNISOLON [Suspect]
     Active Substance: PREDNISOLONE
     Dosage: 5 MG, QD
     Route: 048
     Dates: start: 20180219, end: 20180225
  42. DEXAMETHASONE. [Suspect]
     Active Substance: DEXAMETHASONE
     Indication: METASTASES TO CENTRAL NERVOUS SYSTEM
     Dosage: 4 MG, QD
     Route: 048
     Dates: start: 20180201, end: 20180201
  43. COBIMETINIB. [Suspect]
     Active Substance: COBIMETINIB
     Indication: MALIGNANT MELANOMA
     Dosage: 20 MG, QD
     Route: 048
     Dates: start: 20180121
  44. LEVETIRACETAM. [Concomitant]
     Active Substance: LEVETIRACETAM
     Dosage: 2 G, QD
     Route: 058
     Dates: start: 20180415, end: 20180420
  45. LEVETIRACETAM. [Concomitant]
     Active Substance: LEVETIRACETAM
     Dosage: 1 G, UNK
     Route: 058
     Dates: start: 20180421
  46. CODEIN [Concomitant]
     Active Substance: CODEINE
     Dosage: 30 GTT, QD
     Route: 065
     Dates: start: 20180329, end: 20180329
  47. CODEIN [Concomitant]
     Active Substance: CODEINE
     Dosage: 30 GTT, QD
     Route: 048
     Dates: start: 20180331, end: 20180331
  48. HYDROMORPHONE [Concomitant]
     Active Substance: HYDROMORPHONE
     Dosage: 0.5 MG, QD
     Route: 058
     Dates: start: 20180413, end: 20180413
  49. HYDROMORPHONE [Concomitant]
     Active Substance: HYDROMORPHONE
     Dosage: 1 MG, UNK
     Route: 058
     Dates: start: 20180415, end: 20180415
  50. THYMIAN [Concomitant]
     Dosage: 40 ML, UNK
     Route: 048
     Dates: start: 20180328, end: 20180328
  51. DEXAMETHASONE. [Suspect]
     Active Substance: DEXAMETHASONE
     Dosage: 4 MG, QD
     Route: 048
     Dates: start: 20180315, end: 20180315
  52. DEXAMETHASONE. [Suspect]
     Active Substance: DEXAMETHASONE
     Dosage: 12 MG, QD
     Route: 048
     Dates: start: 20180417
  53. VEMURAFENIB. [Suspect]
     Active Substance: VEMURAFENIB
     Dosage: 960 MG, QD
     Route: 048
     Dates: start: 20180220, end: 20180222
  54. VEMURAFENIB. [Suspect]
     Active Substance: VEMURAFENIB
     Dosage: 1920 MG, QD
     Route: 048
     Dates: start: 20180308, end: 20180316
  55. SYMBICORT [Concomitant]
     Active Substance: BUDESONIDE\FORMOTEROL FUMARATE DIHYDRATE
     Indication: ASTHMA
     Dosage: 160 MG, BID
     Route: 048
     Dates: start: 20120101, end: 20180404
  56. LEVETIRACETAM. [Concomitant]
     Active Substance: LEVETIRACETAM
     Indication: EPILEPSY
     Dosage: 3000 MG, QD
     Route: 048
     Dates: start: 20171101, end: 20180323
  57. CODEIN [Concomitant]
     Active Substance: CODEINE
     Dosage: 30 GTT, QD
     Route: 048
     Dates: start: 20180404, end: 20180404
  58. THIAMIN [Concomitant]
     Active Substance: THIAMINE
     Indication: COUGH
     Dosage: 40 ML, QD
     Route: 048
     Dates: start: 20180328, end: 20180328
  59. HYDROMORPHONE [Concomitant]
     Active Substance: HYDROMORPHONE
     Dosage: 1.2 MG, QD
     Route: 058
     Dates: start: 20180416, end: 20180417
  60. DIMENHYDRINAT [Concomitant]
     Active Substance: DIMENHYDRINATE
     Dosage: 100 MG, QD
     Route: 048
     Dates: start: 20180404, end: 20180404
  61. THYMIAN [Concomitant]
     Dosage: 60 MG, QD
     Route: 048
     Dates: start: 20180329, end: 20180404
  62. TAVOR [Concomitant]
     Dosage: 1 MG, QD
     Route: 058
     Dates: start: 20180417, end: 20180417
  63. PREDNISOLON [Suspect]
     Active Substance: PREDNISOLONE
     Dosage: 15 MG, QD
     Route: 048
     Dates: start: 20180205, end: 20180211
  64. PREDNISOLON [Suspect]
     Active Substance: PREDNISOLONE
     Dosage: 5 MG, QD
     Route: 048
     Dates: start: 20180225
  65. COBIMETINIB. [Suspect]
     Active Substance: COBIMETINIB
     Dosage: 60 MG, QD
     Route: 048
     Dates: start: 20180220, end: 20180222
  66. COBIMETINIB. [Suspect]
     Active Substance: COBIMETINIB
     Dosage: 60 MG, QD
     Route: 048
     Dates: start: 20180308, end: 20180316
  67. PANTOPRAZOL [Concomitant]
     Active Substance: PANTOPRAZOLE SODIUM
     Indication: GASTROINTESTINAL DISORDER PROPHYLAXIS
     Dosage: 40 MG, QD
     Route: 048
     Dates: start: 20170901, end: 20180415
  68. LEVETIRACETAM. [Concomitant]
     Active Substance: LEVETIRACETAM
     Dosage: 2000 MG, QOD
     Route: 048
     Dates: start: 20180324, end: 20180414
  69. DALTEPARIN [Concomitant]
     Active Substance: DALTEPARIN
     Dosage: 5000 IU, QD
     Route: 058
     Dates: start: 20180415
  70. METAMIZOLE [Concomitant]
     Active Substance: METAMIZOLE
     Indication: NECK PAIN
     Dosage: 30 GTT, QD
     Route: 048
     Dates: start: 20180404, end: 20180404
  71. METAMIZOLE [Concomitant]
     Active Substance: METAMIZOLE
     Dosage: 5 G, QD
     Route: 058
     Dates: start: 20180417
  72. RINGERS SOLUTION [Concomitant]
     Active Substance: CALCIUM CHLORIDE\POTASSIUM CHLORIDE\SODIUM CHLORIDE
     Indication: GENERAL PHYSICAL HEALTH DETERIORATION
     Dosage: 500 ML, QD
     Route: 042
     Dates: start: 20180320, end: 20180323
  73. RINGERS SOLUTION [Concomitant]
     Active Substance: CALCIUM CHLORIDE\POTASSIUM CHLORIDE\SODIUM CHLORIDE
     Dosage: 1000 ML, QD
     Route: 042
     Dates: start: 20180324, end: 20180324
  74. LEVOMEPROMAZINE [Concomitant]
     Active Substance: LEVOMEPROMAZINE
     Indication: RESTLESSNESS
     Dosage: 4 GTT, QD
     Route: 058
     Dates: start: 20180413, end: 20180413
  75. OTRIVEN [Concomitant]
     Active Substance: XYLOMETAZOLINE HYDROCHLORIDE
     Indication: DYSPNOEA
     Dosage: 1 GTT, QD
     Route: 045
     Dates: start: 20180415, end: 20180415
  76. PREDNISOLON [Suspect]
     Active Substance: PREDNISOLONE
     Dosage: 10 MG, QD
     Route: 048
     Dates: start: 20180212, end: 20180218
  77. DEXAMETHASONE. [Suspect]
     Active Substance: DEXAMETHASONE
     Dosage: 12 MG, QD
     Route: 048
     Dates: start: 20180414, end: 20180416
  78. DEXAMETHASONE. [Suspect]
     Active Substance: DEXAMETHASONE
     Dosage: 12 MG, QD
     Route: 048
     Dates: start: 20180421
  79. COBIMETINIB. [Suspect]
     Active Substance: COBIMETINIB
     Dosage: 60 MG, QD
     Route: 048
     Dates: start: 20180121
  80. COBIMETINIB. [Suspect]
     Active Substance: COBIMETINIB
     Dosage: 60 MG, QD
     Route: 048
     Dates: start: 20180202, end: 20180216
  81. VEMURAFENIB. [Suspect]
     Active Substance: VEMURAFENIB
     Dosage: 960 MG, QD
     Route: 048
     Dates: start: 20180216, end: 20180216
  82. VEMURAFENIB. [Suspect]
     Active Substance: VEMURAFENIB
     Dosage: 1920 MG, UNK
     Route: 048
  83. HEPARIN [Concomitant]
     Active Substance: HEPARIN SODIUM
     Dosage: 10000 IU, QD
     Route: 058
     Dates: start: 20180319, end: 20180328
  84. CODEIN [Concomitant]
     Active Substance: CODEINE
     Dosage: 30 GTT, QD
     Route: 048
     Dates: start: 20180402, end: 20180402
  85. MIDAZOLAM [Concomitant]
     Active Substance: MIDAZOLAM HYDROCHLORIDE
     Indication: RESTLESSNESS
     Dosage: 3 GTT, QD
     Route: 048
     Dates: start: 20180408, end: 20180408
  86. MIDAZOLAM [Concomitant]
     Active Substance: MIDAZOLAM HYDROCHLORIDE
     Dosage: 48 MG, QD
     Route: 058
     Dates: start: 20180419
  87. HYDROMORPHONE [Concomitant]
     Active Substance: HYDROMORPHONE
     Dosage: 2 MG, QD
     Route: 048
     Dates: start: 20180409, end: 20180409
  88. HYDROMORPHONE [Concomitant]
     Active Substance: HYDROMORPHONE
     Dosage: 2 MG, QD
     Route: 048
     Dates: start: 20180415, end: 20180415
  89. DIMENHYDRINAT [Concomitant]
     Active Substance: DIMENHYDRINATE
     Dosage: 62 MG, QD
     Route: 042
     Dates: start: 20180403, end: 20180403
  90. DEXAMETHASONE. [Suspect]
     Active Substance: DEXAMETHASONE
     Dosage: 4 MG, QD
     Route: 048
     Dates: start: 20180325, end: 20180328
  91. VEMURAFENIB. [Suspect]
     Active Substance: VEMURAFENIB
     Dosage: 20160 MG, QD
     Route: 048
     Dates: start: 20180220, end: 20180222
  92. DALTEPARIN [Concomitant]
     Active Substance: DALTEPARIN
     Indication: PROPHYLAXIS
     Dosage: 5000 IU, QD
     Route: 058
     Dates: start: 20180322
  93. DALTEPARIN [Concomitant]
     Active Substance: DALTEPARIN
     Dosage: 5000 IU, QD
     Route: 058
     Dates: start: 20180329, end: 20180415
  94. VOMEX [Concomitant]
     Active Substance: DIMENHYDRINATE
     Indication: NAUSEA
     Dosage: 62 MG, QD
     Route: 042
     Dates: start: 20180321, end: 20180322
  95. HYDROMORPHONE [Concomitant]
     Active Substance: HYDROMORPHONE
     Indication: HEADACHE
     Dosage: 2.6 MG, QD
     Route: 048
     Dates: start: 20180405, end: 20180405
  96. HYDROMORPHONE [Concomitant]
     Active Substance: HYDROMORPHONE
     Dosage: 3.9 MG, QD
     Route: 048
     Dates: start: 20180406, end: 20180408
  97. HYDROMORPHONE [Concomitant]
     Active Substance: HYDROMORPHONE
     Dosage: 3.9 MG, UNK
     Route: 048
     Dates: start: 20180409, end: 20180409
  98. DIMENHYDRINAT [Concomitant]
     Active Substance: DIMENHYDRINATE
     Dosage: 150 MG, QD
     Route: 054
     Dates: start: 20180401, end: 20180401
  99. DIMENHYDRINAT [Concomitant]
     Active Substance: DIMENHYDRINATE
     Dosage: 300 MG, QD
     Route: 054
     Dates: start: 20180402, end: 20180402
  100. TAVOR [Concomitant]
     Indication: RESTLESSNESS
     Dosage: 2.5 MG, QD
     Route: 058
     Dates: start: 20180415, end: 20180416
  101. KALINOR [Concomitant]
     Dosage: 4000 MG, QD
     Route: 048
     Dates: start: 20180324, end: 20180326
  102. PARACETAMOL [Concomitant]
     Active Substance: ACETAMINOPHEN
     Indication: PYREXIA
     Dosage: 1 G, QD
     Route: 042
     Dates: start: 20180321, end: 20190322
  103. ATROVENT [Concomitant]
     Active Substance: IPRATROPIUM BROMIDE
     Indication: COUGH
     Dosage: 3 OT, QD
     Route: 055
     Dates: start: 20180330, end: 20180404

REACTIONS (63)
  - Nausea [Recovered/Resolved]
  - Cough [Recovered/Resolved]
  - Dry mouth [Not Recovered/Not Resolved]
  - Headache [Not Recovered/Not Resolved]
  - Autoimmune hepatitis [Unknown]
  - Computerised tomogram thorax abnormal [Unknown]
  - Anaemia [Recovered/Resolved]
  - Myalgia [Not Recovered/Not Resolved]
  - Febrile infection [Recovered/Resolved]
  - Radiation skin injury [Recovered/Resolved]
  - Organic brain syndrome [Not Recovered/Not Resolved]
  - C-reactive protein increased [Not Recovered/Not Resolved]
  - Pain in extremity [Recovered/Resolved]
  - Pain [Not Recovered/Not Resolved]
  - Alveolar proteinosis [Unknown]
  - Arthralgia [Recovered/Resolved]
  - Confusional state [Unknown]
  - Flatulence [Recovered/Resolved]
  - Vertigo [Not Recovered/Not Resolved]
  - Immune system disorder [Not Recovered/Not Resolved]
  - Insomnia [Not Recovered/Not Resolved]
  - Constipation [Not Recovered/Not Resolved]
  - Relapsing fever [Recovered/Resolved]
  - Nausea [Not Recovered/Not Resolved]
  - Neurological symptom [Unknown]
  - Haematochezia [Recovered/Resolved]
  - Dysarthria [Not Recovered/Not Resolved]
  - Alveolitis [Not Recovered/Not Resolved]
  - Hepatitis viral [Not Recovered/Not Resolved]
  - Anxiety [Not Recovered/Not Resolved]
  - Atypical pneumonia [Not Recovered/Not Resolved]
  - Oedema peripheral [Not Recovered/Not Resolved]
  - Diarrhoea [Recovered/Resolved]
  - General physical health deterioration [Not Recovered/Not Resolved]
  - Groin pain [Recovered/Resolved]
  - Disorientation [Not Recovered/Not Resolved]
  - Brain stem syndrome [Not Recovered/Not Resolved]
  - Colitis [Not Recovered/Not Resolved]
  - Pneumonia viral [Not Recovered/Not Resolved]
  - Death [Fatal]
  - Pyrexia [Recovered/Resolved]
  - Dysphagia [Recovered/Resolved]
  - Transaminases increased [Recovering/Resolving]
  - Hepatic steatosis [Unknown]
  - Fatigue [Not Recovered/Not Resolved]
  - Balance disorder [Recovered/Resolved]
  - Restlessness [Not Recovered/Not Resolved]
  - Tremor [Recovered/Resolved]
  - Lung disorder [Unknown]
  - Dyspnoea [Recovered/Resolved]
  - Neck pain [Recovered/Resolved]
  - Encephalitis autoimmune [Unknown]
  - Musculoskeletal stiffness [Not Recovered/Not Resolved]
  - Chills [Recovered/Resolved]
  - Vomiting [Recovered/Resolved]
  - Abdominal pain [Recovered/Resolved]
  - Cough [Not Recovered/Not Resolved]
  - Coma [Not Recovered/Not Resolved]
  - Nervous system disorder [Not Recovered/Not Resolved]
  - Vasculitis [Not Recovered/Not Resolved]
  - Psychotic disorder [Unknown]
  - Hypokalaemia [Not Recovered/Not Resolved]
  - Sleep disorder [Recovered/Resolved]

NARRATIVE: CASE EVENT DATE: 20180202
